FAERS Safety Report 15455707 (Version 1)
Quarter: 2018Q3

REPORT INFORMATION
  Report Type: Spontaneous
  Country: US (occurrence: US)
  Receive Date: 20180927
  Receipt Date: 20180927
  Transmission Date: 20181010
  Serious: Yes (Other)
  Sender: FDA-Public Use
  Company Number: None

PATIENT
  Age: 12 Year
  Sex: Male
  Weight: 45.7 kg

DRUGS (2)
  1. LANSOPRAZOLE 30 MG ODT [Suspect]
     Active Substance: LANSOPRAZOLE
     Indication: EOSINOPHILIC OESOPHAGITIS
     Route: 048
  2. LANSOPRAZOLE 30 MG CAPSULES [Suspect]
     Active Substance: LANSOPRAZOLE
     Route: 048

REACTIONS (2)
  - Product substitution issue [None]
  - Multiple allergies [None]

NARRATIVE: CASE EVENT DATE: 20180912
